FAERS Safety Report 11214367 (Version 2)
Quarter: 2015Q2

REPORT INFORMATION
  Report Type: Spontaneous
  Country: RU (occurrence: RU)
  Receive Date: 20150624
  Receipt Date: 20150630
  Transmission Date: 20150821
  Serious: Yes (Death, Life-Threatening, Other)
  Sender: FDA-Public Use
  Company Number: RU-ASTRAZENECA-2015SE60260

PATIENT
  Age: 29340 Day
  Sex: Female

DRUGS (10)
  1. PRESTARIUM A [Concomitant]
  2. ACTRAPID [Concomitant]
     Active Substance: INSULIN HUMAN
     Dosage: 8 ED THREE TIMES A DAY
  3. BRILINTA [Suspect]
     Active Substance: TICAGRELOR
     Indication: ACUTE CORONARY SYNDROME
     Route: 048
     Dates: start: 20150602
  4. ACECARDOL [Concomitant]
     Active Substance: ASPIRIN
  5. FUROSEMID [Concomitant]
     Active Substance: FUROSEMIDE
     Route: 042
  6. BISOPROLOL [Concomitant]
     Active Substance: BISOPROLOL
  7. ATORVASTATIN [Concomitant]
     Active Substance: ATORVASTATIN
  8. ANFIBRA [Concomitant]
     Dosage: 0.4 TWO TIMES A DAY
  9. VEROSPIRON [Concomitant]
     Active Substance: SPIRONOLACTONE
  10. OMEZ [Concomitant]
     Active Substance: OMEPRAZOLE

REACTIONS (2)
  - Device occlusion [Fatal]
  - Interventricular septum rupture [Unknown]

NARRATIVE: CASE EVENT DATE: 20150602
